FAERS Safety Report 13051167 (Version 1)
Quarter: 2016Q4

REPORT INFORMATION
  Report Type: Spontaneous
  Country: US (occurrence: US)
  Receive Date: 20161221
  Receipt Date: 20161221
  Transmission Date: 20170207
  Serious: Yes (Disabling)
  Sender: FDA-Public Use
  Company Number: None

PATIENT
  Age: 53 Year
  Sex: Female
  Weight: 109 kg

DRUGS (6)
  1. HYDROCODONE/ACETAMINOPHEN (NORCO ORAL) [Concomitant]
  2. COLACE [Concomitant]
     Active Substance: DOCUSATE SODIUM
  3. HUMIRA [Suspect]
     Active Substance: ADALIMUMAB
     Indication: PSORIASIS
     Dosage: ?          OTHER FREQUENCY:WEEKLY;?
     Route: 058
  4. INSULIN GLARGINE (TOUJEO SOLOSTAR) [Concomitant]
  5. PEPCID [Concomitant]
     Active Substance: FAMOTIDINE
  6. CIPROFLOXACIN HCL (CIPRO ORAL) [Concomitant]

REACTIONS (4)
  - Muscular weakness [None]
  - Fall [None]
  - Chronic inflammatory demyelinating polyradiculoneuropathy [None]
  - Hyperreflexia [None]

NARRATIVE: CASE EVENT DATE: 20161202
